FAERS Safety Report 4894127-8 (Version None)
Quarter: 2006Q1

REPORT INFORMATION
  Report Type: 
  Country: None (occurrence: None)
  Receive Date: 20060127
  Receipt Date: 20050811
  Transmission Date: 20060701
  Serious: No
  Sender: FDA-Public Use
  Company Number: 2005096946

PATIENT
  Age: 48 Year
  Sex: Female

DRUGS (3)
  1. WELLBUTRIN [Suspect]
     Indication: DRUG USE FOR UNKNOWN INDICATION
     Route: 048
     Dates: start: 20020101
  2. ROGAINE [Suspect]
     Dosage: 10SPR PER DAY
     Route: 061
  3. RITALIN [Suspect]
     Route: 065

REACTIONS (3)
  - ALOPECIA [None]
  - CLUSTER HEADACHE [None]
  - MIGRAINE [None]
